FAERS Safety Report 5807973-0 (Version None)
Quarter: 2008Q3

REPORT INFORMATION
  Report Type: 
  Country: None (occurrence: None)
  Receive Date: 20080708
  Receipt Date: 20080703
  Transmission Date: 20090109
  Serious: Yes (Death)
  Sender: FDA-Public Use
  Company Number: 2008-01694

PATIENT
  Age: 56 Year
  Sex: Male
  Weight: 74 kg

DRUGS (16)
  1. VELCADE [Suspect]
     Indication: MULTIPLE MYELOMA
     Dosage: 2.1 MG, INTRAVENOUS
     Route: 042
     Dates: start: 20070508, end: 20070802
  2. DEXAMETHASONE TAB [Suspect]
     Indication: MULTIPLE MYELOMA
     Dosage: 16 MG, INTRAVENOUS; 10 MG, INTRAVENOUS; 16 MG, ORAL; 10 MG, ORAL; 20 MG, ORAL; 10 MG, ORAL
     Route: 042
     Dates: start: 20070530, end: 20070618
  3. DEXAMETHASONE TAB [Suspect]
     Indication: MULTIPLE MYELOMA
     Dosage: 16 MG, INTRAVENOUS; 10 MG, INTRAVENOUS; 16 MG, ORAL; 10 MG, ORAL; 20 MG, ORAL; 10 MG, ORAL
     Route: 042
     Dates: start: 20070623, end: 20070703
  4. DEXAMETHASONE TAB [Suspect]
     Indication: MULTIPLE MYELOMA
     Dosage: 16 MG, INTRAVENOUS; 10 MG, INTRAVENOUS; 16 MG, ORAL; 10 MG, ORAL; 20 MG, ORAL; 10 MG, ORAL
     Route: 042
     Dates: start: 20070713, end: 20070716
  5. DEXAMETHASONE TAB [Suspect]
     Indication: MULTIPLE MYELOMA
     Dosage: 16 MG, INTRAVENOUS; 10 MG, INTRAVENOUS; 16 MG, ORAL; 10 MG, ORAL; 20 MG, ORAL; 10 MG, ORAL
     Route: 042
     Dates: start: 20070622, end: 20070802
  6. DEXAMETHASONE TAB [Suspect]
     Indication: MULTIPLE MYELOMA
     Dosage: 16 MG, INTRAVENOUS; 10 MG, INTRAVENOUS; 16 MG, ORAL; 10 MG, ORAL; 20 MG, ORAL; 10 MG, ORAL
     Route: 042
     Dates: start: 20070721, end: 20070821
  7. DEXAMETHASONE TAB [Suspect]
     Indication: MULTIPLE MYELOMA
     Dosage: 16 MG, INTRAVENOUS; 10 MG, INTRAVENOUS; 16 MG, ORAL; 10 MG, ORAL; 20 MG, ORAL; 10 MG, ORAL
     Route: 042
     Dates: start: 20070529
  8. GLYBURIDE [Concomitant]
  9. VOGLIBOSE (VOGLIBOSE) [Concomitant]
  10. SULFAMETHOXAZOLE AND TRIMETHOPRIM [Concomitant]
  11. LOXONIN (LOXOPROFEN SODIUM) [Concomitant]
  12. LANSOPRAZOLE [Concomitant]
  13. ZOMETA [Concomitant]
  14. FLOMOX (CEFCAPENE PIVOXIL HYDROCHLORIDE) [Concomitant]
  15. ROCEPHIN [Concomitant]
  16. FUNGIZONE [Concomitant]

REACTIONS (14)
  - ANAEMIA [None]
  - BLOOD ALBUMIN DECREASED [None]
  - BLOOD ALKALINE PHOSPHATASE INCREASED [None]
  - BLOOD GLUCOSE INCREASED [None]
  - BLOOD LACTATE DEHYDROGENASE INCREASED [None]
  - C-REACTIVE PROTEIN INCREASED [None]
  - DISEASE PROGRESSION [None]
  - GLUCOSE URINE PRESENT [None]
  - NEUTROPHIL COUNT DECREASED [None]
  - OEDEMA PERIPHERAL [None]
  - ORAL CANDIDIASIS [None]
  - PLATELET COUNT DECREASED [None]
  - PROTEIN TOTAL DECREASED [None]
  - PROTEIN URINE PRESENT [None]
